FAERS Safety Report 8429866-5 (Version None)
Quarter: 2012Q2

REPORT INFORMATION
  Report Type: 
  Country: None (occurrence: None)
  Receive Date: 20120612
  Receipt Date: 20120605
  Transmission Date: 20120825
  Serious: Yes (Other)
  Sender: FDA-Public Use
  Company Number: US-BRISTOL-MYERS SQUIBB COMPANY-16664377

PATIENT
  Age: 79 Year
  Sex: Female

DRUGS (4)
  1. HALDOL [Concomitant]
  2. ABILIFY [Suspect]
     Dosage: TABS
     Route: 048
  3. COGENTIN [Concomitant]
  4. REMERON [Concomitant]

REACTIONS (2)
  - DECREASED APPETITE [None]
  - DEMENTIA [None]
